FAERS Safety Report 14850080 (Version 1)
Quarter: 2018Q2

REPORT INFORMATION
  Report Type: Spontaneous
  Country: CA (occurrence: CA)
  Receive Date: 20180504
  Receipt Date: 20180504
  Transmission Date: 20180711
  Serious: Yes (Other)
  Sender: FDA-Public Use
  Company Number: CA-TEVA-2018-CA-887663

PATIENT
  Age: 58 Year
  Sex: Female
  Weight: 79.45 kg

DRUGS (11)
  1. BRICANYL [Concomitant]
     Active Substance: TERBUTALINE SULFATE
  2. RAMIPRIL. [Suspect]
     Active Substance: RAMIPRIL
     Indication: PROPHYLAXIS
     Route: 048
  3. CONTRAST MEDIA [Concomitant]
     Active Substance: UNSPECIFIED INGREDIENT
  4. PULMICORT TURBUHALER [Concomitant]
     Active Substance: BUDESONIDE
  5. ADVIL [Concomitant]
     Active Substance: IBUPROFEN
  6. GLUCOPHAGE [Concomitant]
     Active Substance: METFORMIN HYDROCHLORIDE
  7. REACTINE [CETIRIZINE] [Concomitant]
     Active Substance: CETIRIZINE HYDROCHLORIDE
  8. SYNTHROID [Concomitant]
     Active Substance: LEVOTHYROXINE SODIUM
  9. TYLENOL [Concomitant]
     Active Substance: ACETAMINOPHEN
  10. RAMIPRIL. [Suspect]
     Active Substance: RAMIPRIL
     Indication: HYPERTENSION
  11. ATORVASTATIN CALCIUM. [Concomitant]
     Active Substance: ATORVASTATIN CALCIUM

REACTIONS (13)
  - Back pain [Recovering/Resolving]
  - Chest discomfort [Recovering/Resolving]
  - Fatigue [Recovering/Resolving]
  - Asthenia [Recovering/Resolving]
  - Cough [Recovering/Resolving]
  - Heart rate decreased [Recovering/Resolving]
  - Asthma [Recovering/Resolving]
  - Dyspnoea [Recovering/Resolving]
  - Headache [Recovering/Resolving]
  - Oropharyngeal pain [Recovering/Resolving]
  - Dizziness [Recovering/Resolving]
  - Respiratory distress [Recovering/Resolving]
  - Respiratory rate increased [Recovering/Resolving]
